FAERS Safety Report 16011767 (Version 3)
Quarter: 2019Q3

REPORT INFORMATION
  Report Type: Report from Study
  Country: BE (occurrence: BE)
  Receive Date: 20190227
  Receipt Date: 20190805
  Transmission Date: 20191004
  Serious: Yes (Other)
  Sender: FDA-Public Use
  Company Number: PHHY2019BE027241

PATIENT
  Age: 25 Year
  Sex: Female
  Weight: 60.5 kg

DRUGS (5)
  1. DABRAFENIB [Suspect]
     Active Substance: DABRAFENIB
     Dosage: 75 MG, UNK
     Route: 048
     Dates: start: 20190131, end: 2019
  2. TRAMETINIB [Suspect]
     Active Substance: TRAMETINIB
     Indication: METASTATIC MALIGNANT MELANOMA
     Dosage: 1 MG, QD
     Route: 048
     Dates: start: 20190107, end: 201901
  3. TRAMETINIB [Suspect]
     Active Substance: TRAMETINIB
     Dosage: 1 MG, QD
     Route: 048
     Dates: start: 20190131, end: 2019
  4. DABRAFENIB [Suspect]
     Active Substance: DABRAFENIB
     Indication: METASTATIC MALIGNANT MELANOMA
     Dosage: 75 MG, UNK
     Route: 048
     Dates: start: 20190107, end: 201901
  5. KEYTRUDA [Suspect]
     Active Substance: PEMBROLIZUMAB
     Indication: PRODUCT USED FOR UNKNOWN INDICATION
     Route: 065

REACTIONS (18)
  - Lymphadenopathy mediastinal [Unknown]
  - Neutropenia [Recovered/Resolved]
  - Sarcoidosis [Recovering/Resolving]
  - Hypersensitivity [Recovered/Resolved]
  - Myalgia [Recovered/Resolved]
  - Drug intolerance [Unknown]
  - Chills [Recovered/Resolved]
  - Influenza like illness [Unknown]
  - Hepatic lesion [Unknown]
  - Rash [Recovered/Resolved]
  - Rash [Recovered/Resolved]
  - Splenic lesion [Unknown]
  - Vomiting [Recovered/Resolved]
  - Pyrexia [Recovered/Resolved]
  - Concomitant disease aggravated [Recovering/Resolving]
  - Lung disorder [Unknown]
  - Headache [Recovered/Resolved]
  - Arthralgia [Unknown]

NARRATIVE: CASE EVENT DATE: 201901
